FAERS Safety Report 9507314 (Version 1)
Quarter: 2013Q1

REPORT INFORMATION
  Report Type: Spontaneous
  Country: US (occurrence: None)
  Receive Date: 20130305
  Receipt Date: 20130305
  Transmission Date: 20140127
  Serious: Yes (Other)
  Sender: FDA-Public Use
  Company Number: 163-21880-12050034

PATIENT
  Age: 53 Year
  Sex: Female

DRUGS (1)
  1. REVLIMID [Suspect]
     Indication: LYMPHADENOPATHY
     Dosage: 21/28 DAYS
     Route: 048
     Dates: start: 20120330

REACTIONS (2)
  - Fatigue [None]
  - Pyrexia [None]
